FAERS Safety Report 25573867 (Version 1)
Quarter: 2025Q3

REPORT INFORMATION
  Report Type: Report from Study
  Country: US (occurrence: US)
  Receive Date: 20250717
  Receipt Date: 20250717
  Transmission Date: 20251020
  Serious: No
  Sender: MALLINCKRODT
  Company Number: US-MALLINCKRODT-MNK202503912

PATIENT
  Sex: Female

DRUGS (1)
  1. CORTICOTROPIN [Suspect]
     Active Substance: CORTICOTROPIN
     Indication: Sarcoidosis
     Dates: start: 20241030

REACTIONS (10)
  - Pain [Unknown]
  - Fall [Unknown]
  - Sacral pain [Unknown]
  - Limb discomfort [Unknown]
  - Head injury [Unknown]
  - Concussion [Unknown]
  - Malaise [Recovering/Resolving]
  - Fatigue [Unknown]
  - Rash [Unknown]
  - Fungal infection [Unknown]
